FAERS Safety Report 8899963 (Version 2)
Quarter: 2012Q4

REPORT INFORMATION
  Report Type: 
  Country: US (occurrence: US)
  Receive Date: 20121109
  Receipt Date: 20121221
  Transmission Date: 20130627
  Serious: Yes (Other)
  Sender: FDA-Public Use
  Company Number: PHEH2012US021956

PATIENT
  Sex: Male

DRUGS (9)
  1. GLEEVEC [Suspect]
     Indication: CHRONIC MYELOID LEUKAEMIA
     Dates: start: 2001, end: 201101
  2. ASA [Concomitant]
  3. CINNAMON [Concomitant]
  4. COZAAR [Concomitant]
  5. GARLIC [Concomitant]
  6. LANTUS [Concomitant]
  7. LOVAZA [Concomitant]
  8. METFORMIN [Concomitant]
  9. TRICOR [Concomitant]

REACTIONS (7)
  - Cognitive disorder [Not Recovered/Not Resolved]
  - Reading disorder [Not Recovered/Not Resolved]
  - Dysgraphia [Not Recovered/Not Resolved]
  - Diabetes mellitus [Unknown]
  - Memory impairment [Not Recovered/Not Resolved]
  - Arthralgia [Not Recovered/Not Resolved]
  - Drug ineffective [Unknown]
